FAERS Safety Report 22384528 (Version 1)
Quarter: 2023Q2

REPORT INFORMATION
  Report Type: Spontaneous
  Country: JP (occurrence: JP)
  Receive Date: 20230530
  Receipt Date: 20230530
  Transmission Date: 20230721
  Serious: Yes (Hospitalization)
  Sender: FDA-Public Use
  Company Number: JP-DSJP-DSJ-2023-121022

PATIENT
  Age: 69 Year
  Sex: Male

DRUGS (4)
  1. OLMESARTAN MEDOXOMIL [Suspect]
     Active Substance: OLMESARTAN MEDOXOMIL
     Indication: Hypertension
     Dosage: 10MG/DAY
     Route: 065
  2. CALBLOCK [Suspect]
     Active Substance: AZELNIDIPINE
     Indication: Hypertension
     Dosage: 8MG/DAY
     Route: 048
  3. VILDAGLIPTIN [Concomitant]
     Active Substance: VILDAGLIPTIN
     Dosage: 50MG/DAY
     Route: 048
  4. METFORMIN HYDROCHLORIDE [Concomitant]
     Active Substance: METFORMIN HYDROCHLORIDE
     Dosage: 500MG/DAY
     Route: 048

REACTIONS (2)
  - Cardiomyopathy [Recovered/Resolved]
  - Brain natriuretic peptide increased [Recovered/Resolved]
